FAERS Safety Report 17734172 (Version 1)
Quarter: 2020Q2

REPORT INFORMATION
  Report Type: Spontaneous
  Country: US (occurrence: US)
  Receive Date: 20200430
  Receipt Date: 20200430
  Transmission Date: 20200714
  Serious: Yes (Hospitalization, Other)
  Sender: FDA-Public Use
  Company Number: None

PATIENT
  Age: 62 Year
  Sex: Female

DRUGS (7)
  1. VITAMIN D [Concomitant]
     Active Substance: VITAMIN D NOS
  2. BASAGLAR [Concomitant]
     Active Substance: INSULIN GLARGINE
  3. INVOKANA [Concomitant]
     Active Substance: CANAGLIFLOZIN
  4. IMATINIB MES 400MG TAB [Suspect]
     Active Substance: IMATINIB MESYLATE
     Indication: PRODUCT USED FOR UNKNOWN INDICATION
     Route: 048
     Dates: start: 20200118
  5. ROSUVASTATIN. [Concomitant]
     Active Substance: ROSUVASTATIN
  6. FLUOXETINE [Concomitant]
     Active Substance: FLUOXETINE HYDROCHLORIDE
  7. LANTUS SOLOS [Concomitant]

REACTIONS (2)
  - Therapy interrupted [None]
  - Colon operation [None]

NARRATIVE: CASE EVENT DATE: 20200421
